FAERS Safety Report 9200280 (Version 2)
Quarter: 2013Q2

REPORT INFORMATION
  Report Type: Spontaneous
  Country: DE (occurrence: DE)
  Receive Date: 20130329
  Receipt Date: 20130609
  Transmission Date: 20140414
  Serious: Yes (Other)
  Sender: FDA-Public Use
  Company Number: DE-OTSUKA-EU-2013-10065

PATIENT
  Age: 52 Year
  Sex: Male

DRUGS (4)
  1. SAMSCA [Suspect]
     Indication: INAPPROPRIATE ANTIDIURETIC HORMONE SECRETION
     Dosage: 7.5 MG MILLIGRAM(S), DAILY DOSE
  2. SALINE [Concomitant]
     Indication: HYPOVOLAEMIA
     Route: 042
  3. ACICLOVIR [Concomitant]
     Indication: ENCEPHALITIS VIRAL
  4. NACL [Concomitant]
     Route: 042

REACTIONS (3)
  - Guillain-Barre syndrome [Unknown]
  - Myelitis [Unknown]
  - Wrong technique in drug usage process [Unknown]
